FAERS Safety Report 7375078-6 (Version None)
Quarter: 2011Q1

REPORT INFORMATION
  Report Type: 
  Country: None (occurrence: None)
  Receive Date: 20110325
  Receipt Date: 20110315
  Transmission Date: 20110831
  Serious: Yes (Hospitalization, Other)
  Sender: FDA-Public Use
  Company Number: CZ-SANOFI-AVENTIS-2011SA013338

PATIENT
  Age: 87 Year
  Sex: Female

DRUGS (9)
  1. FURON [Concomitant]
     Route: 048
  2. CIPROFLOXACIN HCL [Concomitant]
     Route: 048
  3. ACE INHIBITOR NOS [Concomitant]
  4. PLAVIX [Concomitant]
     Route: 048
  5. MULTAQ [Suspect]
     Indication: ATRIAL FIBRILLATION
     Route: 048
     Dates: start: 20110217, end: 20110217
  6. PREDUCTAL [Concomitant]
     Indication: ANGINA PECTORIS
     Route: 048
  7. VEROSPIRON [Concomitant]
     Route: 048
  8. CORDARONE [Concomitant]
     Indication: ATRIAL FIBRILLATION
     Dosage: SINGLE DOSE
     Route: 042
     Dates: start: 20110216, end: 20110216
  9. BETA BLOCKING AGENTS [Concomitant]

REACTIONS (7)
  - TACHYCARDIA [None]
  - ATRIAL FIBRILLATION [None]
  - BLOOD PRESSURE INCREASED [None]
  - PULMONARY OEDEMA [None]
  - DYSPNOEA [None]
  - CARDIAC FAILURE [None]
  - LEFT VENTRICULAR FAILURE [None]
